FAERS Safety Report 18223129 (Version 1)
Quarter: 2020Q3

REPORT INFORMATION
  Report Type: Spontaneous
  Country: CA (occurrence: CA)
  Receive Date: 20200902
  Receipt Date: 20200902
  Transmission Date: 20201103
  Serious: Yes (Other)
  Sender: FDA-Public Use
  Company Number: CA-PFIZER INC-2020337176

PATIENT
  Age: 83 Year
  Sex: Male

DRUGS (2)
  1. CRIZOTINIB [Suspect]
     Active Substance: CRIZOTINIB
     Indication: ROS1 GENE REARRANGEMENT
  2. CRIZOTINIB [Suspect]
     Active Substance: CRIZOTINIB
     Indication: LUNG ADENOCARCINOMA
     Dosage: UNK
     Dates: start: 20200506, end: 20200623

REACTIONS (6)
  - Fatigue [Unknown]
  - Transaminases increased [Recovered/Resolved]
  - Hyperglycaemia [Unknown]
  - Neoplasm progression [Unknown]
  - Hyperbilirubinaemia [Recovered/Resolved]
  - Abdominal discomfort [Unknown]

NARRATIVE: CASE EVENT DATE: 20200804
